FAERS Safety Report 25048796 (Version 3)
Quarter: 2025Q2

REPORT INFORMATION
  Report Type: Report from Study
  Country: CA (occurrence: CA)
  Receive Date: 20250307
  Receipt Date: 20250430
  Transmission Date: 20250716
  Serious: Yes (Other)
  Sender: ROCHE
  Company Number: CA-ROCHE-10000130784

PATIENT
  Age: 61 Year
  Sex: Male

DRUGS (36)
  1. ACTEMRA [Suspect]
     Active Substance: TOCILIZUMAB
     Indication: Haemophagocytic lymphohistiocytosis
     Dosage: DRUG DOSE FIRST ADMINISTERED IS 4 MG/KG   MILLIGRAM(S)/KILOGRAM
     Route: 042
     Dates: start: 20240511, end: 20240619
  2. ACTEMRA [Suspect]
     Active Substance: TOCILIZUMAB
     Indication: Cytokine release syndrome
     Dosage: DRUG DOSE FIRST ADMINISTERED IS 300 MG MILLIGRAM(S)
     Route: 042
     Dates: start: 20240724, end: 202411
  3. ACTEMRA [Suspect]
     Active Substance: TOCILIZUMAB
     Dosage: DRUG DOSE FIRST ADMINISTERED IS 300 MG MILLIGRAM(S)
     Route: 042
     Dates: start: 202405
  4. ACTEMRA [Suspect]
     Active Substance: TOCILIZUMAB
     Route: 042
  5. ACTEMRA [Suspect]
     Active Substance: TOCILIZUMAB
     Route: 042
     Dates: start: 2024, end: 20250408
  6. ACTEMRA [Suspect]
     Active Substance: TOCILIZUMAB
     Route: 042
  7. ACTEMRA [Suspect]
     Active Substance: TOCILIZUMAB
     Route: 042
  8. ACTEMRA [Suspect]
     Active Substance: TOCILIZUMAB
     Route: 042
  9. ACTEMRA [Suspect]
     Active Substance: TOCILIZUMAB
     Route: 042
  10. LENVATINIB [Suspect]
     Active Substance: LENVATINIB
     Indication: Product used for unknown indication
     Route: 065
  11. ALENDRONATE [Concomitant]
     Active Substance: ALENDRONATE SODIUM
  12. ESCITALOPRAM [Concomitant]
     Active Substance: ESCITALOPRAM OXALATE
  13. HYDROMORPHONE [Concomitant]
     Active Substance: HYDROMORPHONE
  14. IRON [Concomitant]
     Active Substance: IRON
  15. RABEPRAZOLE [Concomitant]
     Active Substance: RABEPRAZOLE
  16. SULFAMETHOXAZOLE [Concomitant]
     Active Substance: SULFAMETHOXAZOLE
  17. TRIMETHOPRIM [Concomitant]
     Active Substance: TRIMETHOPRIM
  18. PANTOPRAZOLE [Concomitant]
     Active Substance: PANTOPRAZOLE
  19. CALCIUM [Concomitant]
     Active Substance: CALCIUM
  20. TYLENOL [Concomitant]
     Active Substance: ACETAMINOPHEN
  21. POLYETHYLENE GLYCOL 3350 [Concomitant]
     Active Substance: POLYETHYLENE GLYCOL 3350
  22. SENNA [Concomitant]
     Active Substance: SENNOSIDES
  23. LACTULOSE [Concomitant]
     Active Substance: LACTULOSE
  24. METOCLOPRAMIDE [Concomitant]
     Active Substance: METOCLOPRAMIDE
  25. ONDANSETRON [Concomitant]
     Active Substance: ONDANSETRON
  26. OLANZAPINE [Concomitant]
     Active Substance: OLANZAPINE
  27. HYDROMORPHONE [Concomitant]
     Active Substance: HYDROMORPHONE
  28. DEXAMETHASONE [Concomitant]
     Active Substance: DEXAMETHASONE
  29. LORAZEPAM [Concomitant]
     Active Substance: LORAZEPAM
  30. METHYLPHENIDATE [Concomitant]
     Active Substance: METHYLPHENIDATE
  31. FENTANYL [Concomitant]
     Active Substance: FENTANYL
  32. CABOZANTINIB [Concomitant]
     Active Substance: CABOZANTINIB
  33. FERROUS GLUCONATE [Concomitant]
     Active Substance: FERROUS GLUCONATE
  34. GRAVOL [Concomitant]
     Active Substance: DIMENHYDRINATE
  35. SENOKOT [Concomitant]
     Active Substance: SENNOSIDES
  36. SOLU-MEDROL [Concomitant]
     Active Substance: METHYLPREDNISOLONE SODIUM SUCCINATE

REACTIONS (24)
  - Asthenia [Not Recovered/Not Resolved]
  - Abdominal discomfort [Not Recovered/Not Resolved]
  - Vision blurred [Recovered/Resolved]
  - Chest discomfort [Recovered/Resolved]
  - Dyspnoea [Recovered/Resolved]
  - Nocturia [Unknown]
  - Osteoarthritis [Unknown]
  - Metastases to pancreas [Unknown]
  - Tumour thrombosis [Unknown]
  - Cyst [Unknown]
  - Therapy partial responder [Unknown]
  - Nausea [Not Recovered/Not Resolved]
  - Flatulence [Not Recovered/Not Resolved]
  - Anxiety [Unknown]
  - Disease progression [Unknown]
  - Decreased appetite [Unknown]
  - Hepatic lesion [Unknown]
  - Iron deficiency [Unknown]
  - Cataract [Unknown]
  - Fatigue [Unknown]
  - Asthenia [Unknown]
  - Abdominal pain [Unknown]
  - Metastatic lymphoma [Unknown]
  - Constipation [Unknown]

NARRATIVE: CASE EVENT DATE: 20240911
